FAERS Safety Report 23294288 (Version 1)
Quarter: 2023Q4

REPORT INFORMATION
  Report Type: Spontaneous
  Country: None (occurrence: US)
  Receive Date: 20231213
  Receipt Date: 20231213
  Transmission Date: 20240109
  Serious: No
  Sender: FDA-Public Use
  Company Number: US-Harrow Eye-2149335

PATIENT
  Sex: Male

DRUGS (3)
  1. CLOFAZIMINE [Suspect]
     Active Substance: CLOFAZIMINE
     Indication: Mycobacterium avium complex infection
  2. MOXIFLOXACIN [Suspect]
     Active Substance: MOXIFLOXACIN
  3. RIFAMPIN [Suspect]
     Active Substance: RIFAMPIN

REACTIONS (2)
  - Drug interaction [Unknown]
  - Drug resistance [Unknown]
